FAERS Safety Report 4699038-9 (Version None)
Quarter: 2005Q2

REPORT INFORMATION
  Report Type: 
  Country: None (occurrence: None)
  Receive Date: 20050623
  Receipt Date: 20050623
  Transmission Date: 20051028
  Serious: Yes (Other)
  Sender: FDA-Public Use
  Company Number: None

PATIENT
  Sex: Female
  Weight: 72.5755 kg

DRUGS (3)
  1. DEPAKOTE [Suspect]
     Indication: BLINDNESS
     Dosage: 250MG    3 TABS AN, 2 P    ORAL
     Route: 048
     Dates: start: 20001108, end: 20050622
  2. DEPAKOTE [Suspect]
     Indication: COGNITIVE DISORDER
     Dosage: 250MG    3 TABS AN, 2 P    ORAL
     Route: 048
     Dates: start: 20001108, end: 20050622
  3. DEPAKOTE [Suspect]
     Indication: DYSAESTHESIA
     Dosage: 250MG    3 TABS AN, 2 P    ORAL
     Route: 048
     Dates: start: 20001108, end: 20050622

REACTIONS (1)
  - DRUG LEVEL DECREASED [None]
